FAERS Safety Report 9118609 (Version 1)
Quarter: 2013Q1

REPORT INFORMATION
  Report Type: Spontaneous
  Country: US (occurrence: US)
  Receive Date: 20130219
  Receipt Date: 20130219
  Transmission Date: 20140127
  Serious: No
  Sender: FDA-Public Use
  Company Number: US-BRISTOL-MYERS SQUIBB COMPANY-17170663

PATIENT
  Age: 68 Year
  Sex: Female
  Weight: 59.86 kg

DRUGS (1)
  1. ABATACEPT SUBQ INJECTION 125MG/ML [Suspect]
     Indication: RHEUMATOID ARTHRITIS
     Dosage: LAST INJ: 26NOV12
     Route: 058

REACTIONS (2)
  - Tooth infection [Unknown]
  - Skin discolouration [Unknown]
